FAERS Safety Report 10221188 (Version 1)
Quarter: 2014Q2

REPORT INFORMATION
  Report Type: Spontaneous
  Country: US (occurrence: None)
  Receive Date: 20140604
  Receipt Date: 20140604
  Transmission Date: 20141212
  Serious: Yes (Life-Threatening, Hospitalization, Other)
  Sender: FDA-Public Use
  Company Number: 2014AP003202

PATIENT
  Age: 65 Year
  Sex: Male

DRUGS (1)
  1. METFORMIN [Suspect]
     Indication: TYPE 2 DIABETES MELLITUS

REACTIONS (10)
  - Cardiac arrest [None]
  - Toxicity to various agents [None]
  - Lactic acidosis [None]
  - Nausea [None]
  - Vomiting [None]
  - Blood creatinine increased [None]
  - Anion gap increased [None]
  - Acidosis [None]
  - Hyperkalaemia [None]
  - Haemodialysis [None]
